FAERS Safety Report 13852790 (Version 2)
Quarter: 2017Q4

REPORT INFORMATION
  Report Type: Spontaneous
  Country: JP (occurrence: JP)
  Receive Date: 20170810
  Receipt Date: 20171026
  Transmission Date: 20180320
  Serious: Yes (Other)
  Sender: FDA-Public Use
  Company Number: JP-ROCHE-1977020

PATIENT
  Age: 8 Decade
  Sex: Female

DRUGS (1)
  1. AVASTIN [Suspect]
     Active Substance: BEVACIZUMAB
     Indication: MALIGNANT GLIOMA
     Dosage: 24 TIME ADMINISTERING
     Route: 041
     Dates: start: 201608, end: 201708

REACTIONS (1)
  - Cerebral atrophy [Recovering/Resolving]

NARRATIVE: CASE EVENT DATE: 20170804
